FAERS Safety Report 4363844-0 (Version None)
Quarter: 2004Q2

REPORT INFORMATION
  Report Type: 
  Country: None (occurrence: None)
  Receive Date: 20040520
  Receipt Date: 20040520
  Transmission Date: 20050107
  Serious: Yes (Hospitalization)
  Sender: FDA-Public Use
  Company Number: None

PATIENT
  Age: 40 Year
  Sex: Female
  Weight: 86.4 kg

DRUGS (2)
  1. NAPROXEN [Suspect]
     Indication: ARTHROSCOPY
     Dosage: 500MG BID ORAL
     Route: 048
     Dates: start: 20040211, end: 20040308
  2. NAPROXEN [Suspect]
     Indication: POST PROCEDURAL PAIN
     Dosage: 500MG BID ORAL
     Route: 048
     Dates: start: 20040211, end: 20040308

REACTIONS (4)
  - ABDOMINAL DISCOMFORT [None]
  - ABDOMINAL PAIN UPPER [None]
  - MELAENA [None]
  - RECTAL HAEMORRHAGE [None]
